FAERS Safety Report 8329806-3 (Version None)
Quarter: 2012Q2

REPORT INFORMATION
  Report Type: 
  Country: None (occurrence: None)
  Receive Date: 20120502
  Receipt Date: 20091103
  Transmission Date: 20120825
  Serious: No
  Sender: FDA-Public Use
  Company Number: US-TEVA-2009012088

PATIENT
  Sex: Female
  Weight: 51.756 kg

DRUGS (5)
  1. NUVIGIL [Suspect]
     Dosage: 125 MILLIGRAM;
     Route: 048
     Dates: start: 20091104
  2. THYROID TAB [Concomitant]
     Dates: start: 20080101
  3. PRASTERONE [Concomitant]
  4. ESTRACE [Concomitant]
     Dates: start: 20090501
  5. NUVIGIL [Suspect]
     Indication: NARCOLEPSY
     Dosage: 125 MILLIGRAM;
     Route: 048
     Dates: start: 20091022, end: 20091102

REACTIONS (6)
  - DISTURBANCE IN ATTENTION [None]
  - PSYCHOMOTOR HYPERACTIVITY [None]
  - DIZZINESS [None]
  - ANXIETY [None]
  - INSOMNIA [None]
  - THINKING ABNORMAL [None]
